FAERS Safety Report 23991960 (Version 1)
Quarter: 2024Q2

REPORT INFORMATION
  Report Type: Spontaneous
  Country: US (occurrence: US)
  Receive Date: 20240620
  Receipt Date: 20240620
  Transmission Date: 20240716
  Serious: No
  Sender: FDA-Public Use
  Company Number: US-HALEON-2182174

PATIENT

DRUGS (1)
  1. ABREVA [Suspect]
     Active Substance: DOCOSANOL
     Indication: Oral herpes

REACTIONS (8)
  - Paraesthesia oral [Unknown]
  - Drug ineffective [Unknown]
  - Oral herpes [Unknown]
  - Impaired healing [Unknown]
  - Disease recurrence [Unknown]
  - Condition aggravated [Unknown]
  - Poor quality sleep [Unknown]
  - General physical health deterioration [Unknown]
